FAERS Safety Report 18617568 (Version 2)
Quarter: 2021Q1

REPORT INFORMATION
  Report Type: Spontaneous
  Country: US (occurrence: US)
  Receive Date: 20201215
  Receipt Date: 20210311
  Transmission Date: 20210419
  Serious: No
  Sender: FDA-Public Use
  Company Number: US-BAYER-2020-276521

PATIENT
  Age: 27 Year
  Sex: Female
  Weight: 83.9 kg

DRUGS (3)
  1. GADAVIST [Suspect]
     Active Substance: GADOBUTROL
     Indication: ADRENAL MASS
  2. GADAVIST [Suspect]
     Active Substance: GADOBUTROL
     Indication: MAGNETIC RESONANCE IMAGING
     Dosage: 8.5 ML, ONCE
     Route: 040
     Dates: start: 20201210, end: 20201210
  3. GADAVIST [Suspect]
     Active Substance: GADOBUTROL
     Indication: HEPATIC LESION

REACTIONS (2)
  - Pruritus [Recovered/Resolved]
  - Urticaria [Recovered/Resolved]

NARRATIVE: CASE EVENT DATE: 20201210
